FAERS Safety Report 24705582 (Version 1)
Quarter: 2024Q4

REPORT INFORMATION
  Report Type: Spontaneous
  Country: US (occurrence: None)
  Receive Date: 20241205
  Receipt Date: 20241205
  Transmission Date: 20250115
  Serious: Yes (Life-Threatening, Disabling)
  Sender: Public
  Company Number: None

PATIENT
  Age: 24 Year
  Sex: Male
  Weight: 76.5 kg

DRUGS (1)
  1. CELEXA [Suspect]
     Active Substance: CITALOPRAM HYDROBROMIDE
     Indication: Anxiety
     Dosage: OTHER QUANTITY : 1 TABLET(S);?FREQUENCY : AT BEDTIME;?
     Route: 048
     Dates: start: 20220301, end: 20220302

REACTIONS (8)
  - Genital hypoaesthesia [None]
  - Libido decreased [None]
  - Male orgasmic disorder [None]
  - Emotional disorder [None]
  - Insomnia [None]
  - Therapy cessation [None]
  - Sexual dysfunction [None]
  - Product communication issue [None]

NARRATIVE: CASE EVENT DATE: 20220301
